FAERS Safety Report 6871229-8 (Version None)
Quarter: 2010Q3

REPORT INFORMATION
  Report Type: 
  Country: None (occurrence: None)
  Receive Date: 20100723
  Receipt Date: 20100713
  Transmission Date: 20110219
  Serious: Yes (Other)
  Sender: FDA-Public Use
  Company Number: BR-PFIZER INC-2010045901

PATIENT
  Age: 48 Year
  Sex: Female
  Weight: 55 kg

DRUGS (6)
  1. CHAMPIX [Suspect]
     Indication: SMOKING CESSATION THERAPY
     Dosage: 1 MG, 2X/DAY, EVERY 12 HOURS
     Route: 048
     Dates: start: 20100407, end: 20100601
  2. CHAMPIX [Suspect]
     Indication: TOBACCO USER
  3. CITALOPRAM [Concomitant]
     Indication: DEPRESSION
     Dosage: 20 MG, 1X/DAY, 1 TABLET
     Dates: start: 20100301, end: 20100601
  4. CITALOPRAM [Concomitant]
     Indication: ANXIETY
  5. ACTONEL [Concomitant]
     Indication: OSTEOPOROSIS
     Dosage: 35 MG, UNK
     Dates: start: 20100201
  6. CALTRATE [Concomitant]
     Indication: OSTEOPOROSIS
     Dosage: UNK
     Dates: start: 20100201

REACTIONS (5)
  - DEPRESSION [None]
  - FRACTURE [None]
  - NERVOUSNESS [None]
  - SPINAL DISORDER [None]
  - WEIGHT DECREASED [None]
